FAERS Safety Report 4716586-3 (Version None)
Quarter: 2005Q3

REPORT INFORMATION
  Report Type: 
  Country: None (occurrence: None)
  Receive Date: 20050718
  Receipt Date: 20050707
  Transmission Date: 20060218
  Serious: Yes (Other)
  Sender: FDA-Public Use
  Company Number: 05-07-1179

PATIENT
  Age: 27 Year
  Sex: Female
  Weight: 58 kg

DRUGS (18)
  1. RANITIDINE [Suspect]
     Indication: PREMEDICATION
     Dosage: 300MG ORAL
     Route: 048
  2. REMIFENTANIL [Suspect]
     Dosage: 2-4UG/KG
  3. METOCLOPRAMIDE [Suspect]
     Indication: PREMEDICATION
     Dosage: 10MG
  4. SUXAMETHONIUM [Suspect]
     Dosage: 1.5MG/KG
  5. SODIUM CITRATE [Suspect]
  6. ETOMIDATE [Suspect]
     Dosage: 0.1MG-0.2MG/K
  7. ISOFLURANE [Suspect]
     Dosage: 1-2% INHALATION
     Route: 055
  8. NITROUS OXIDE [Suspect]
     Dosage: INHALATION
     Route: 055
  9. OXYGEN [Suspect]
     Dosage: INHALATION
     Route: 055
  10. VECURONIUM BROMIDE [Suspect]
     Dosage: 0.1MG/KG INHALATION
     Route: 055
  11. MORPHINE [Concomitant]
  12. GLYCOPYRRONIUM BROMIDE [Concomitant]
  13. NEOSTIGMINE [Concomitant]
  14. ACETAMINOPHEN [Concomitant]
  15. DICLOFENAC SODIUM [Concomitant]
  16. OXYTOCIN [Concomitant]
  17. GENTAMICIN [Concomitant]
  18. CEFUROXIME [Concomitant]

REACTIONS (1)
  - DRUG EXPOSURE DURING PREGNANCY [None]
